FAERS Safety Report 11573252 (Version 1)
Quarter: 2015Q3

REPORT INFORMATION
  Report Type: Spontaneous
  Country: US (occurrence: US)
  Receive Date: 20150929
  Receipt Date: 20150929
  Transmission Date: 20151125
  Serious: Yes (Hospitalization, Other)
  Sender: FDA-Public Use
  Company Number: US-INCYTE CORPORATION-2015IN003888

PATIENT
  Age: 57 Year
  Sex: Female
  Weight: 86.18 kg

DRUGS (9)
  1. ASPIRIN. [Concomitant]
     Active Substance: ASPIRIN
  2. AMBIEN [Concomitant]
     Active Substance: ZOLPIDEM TARTRATE
  3. CITALOPRAM [Concomitant]
     Active Substance: CITALOPRAM HYDROBROMIDE
  4. METOPROLOL [Concomitant]
     Active Substance: METOPROLOL
  5. TURMERIC                           /01079602/ [Concomitant]
  6. LISINOPRIL AND HYDROCHLOROTHIAZIDE [Concomitant]
     Active Substance: HYDROCHLOROTHIAZIDE\LISINOPRIL
  7. JAKAFI [Suspect]
     Active Substance: RUXOLITINIB
     Indication: POLYCYTHAEMIA VERA
     Dosage: 15 MG, BID
     Route: 048
     Dates: start: 20150303, end: 201508
  8. BUPROPION. [Concomitant]
     Active Substance: BUPROPION
  9. MULTIVITAMIN                       /00097801/ [Concomitant]
     Active Substance: VITAMINS

REACTIONS (12)
  - Arthralgia [Unknown]
  - Rash [Unknown]
  - Hepatic enzyme increased [Unknown]
  - Asthenia [Unknown]
  - Hyperhidrosis [Unknown]
  - Livedo reticularis [Unknown]
  - Nausea [Unknown]
  - Thrombosis [Unknown]
  - Diarrhoea [Unknown]
  - Herpes zoster [Unknown]
  - Syncope [Unknown]
  - Pallor [Unknown]

NARRATIVE: CASE EVENT DATE: 2015
